FAERS Safety Report 4713507-4 (Version None)
Quarter: 2005Q3

REPORT INFORMATION
  Report Type: 
  Country: None (occurrence: None)
  Receive Date: 20050711
  Receipt Date: 20050628
  Transmission Date: 20060218
  Serious: Yes (Disabling)
  Sender: FDA-Public Use
  Company Number: 2005095179

PATIENT
  Sex: Male
  Weight: 3.5 kg

DRUGS (6)
  1. XANAX [Suspect]
     Indication: DEPRESSION
     Dosage: ORAL
     Route: 048
     Dates: end: 20030118
  2. AMITRIPTYLINE HCL [Suspect]
     Indication: DEPRESSION
     Dosage: ORAL
     Route: 048
  3. OXAZEPAM [Suspect]
     Indication: DEPRESSION
     Dosage: ORAL
  4. STILNOX (ZOLPIDEM) [Suspect]
     Indication: DEPRESSION
     Dosage: ORAL
     Route: 048
     Dates: end: 20030118
  5. EFFEXOR [Suspect]
     Indication: DEPRESSION
     Dosage: ORAL
     Dates: end: 20030118
  6. EUPHYTOSE (BALLOTI EXTRACT, CRATAEGUS EXTRACT, KOLA, PASSIFLORA EXTRAC [Suspect]
     Indication: DEPRESSION

REACTIONS (15)
  - ABNORMAL BEHAVIOUR [None]
  - BONE DEVELOPMENT ABNORMAL [None]
  - CEREBRAL ATROPHY CONGENITAL [None]
  - CONGENITAL ANOMALY [None]
  - CONGENITAL HAIR DISORDER [None]
  - CONGENITAL NAIL DISORDER [None]
  - DRUG EXPOSURE DURING PREGNANCY [None]
  - EPILEPSY CONGENITAL [None]
  - FACIAL DYSMORPHISM [None]
  - FLAT FEET [None]
  - KARYOTYPE ANALYSIS ABNORMAL [None]
  - LATE DEVELOPER [None]
  - PSYCHOMOTOR RETARDATION [None]
  - SKIN HYPOPLASIA [None]
  - SKIN MALFORMATION [None]
